FAERS Safety Report 5842181-9 (Version None)
Quarter: 2008Q3

REPORT INFORMATION
  Report Type: 
  Country: None (occurrence: None)
  Receive Date: 20080812
  Receipt Date: 20080730
  Transmission Date: 20090109
  Serious: Yes (Other)
  Sender: FDA-Public Use
  Company Number: FR-ROCHE-578858

PATIENT
  Sex: Male
  Weight: 12 kg

DRUGS (6)
  1. ROCEPHIN [Suspect]
     Route: 042
     Dates: start: 20071121, end: 20071124
  2. ROCEPHIN [Suspect]
     Route: 042
     Dates: start: 20080131
  3. ROCEPHIN [Suspect]
     Route: 042
     Dates: start: 20080505, end: 20080510
  4. TEGRETOL [Concomitant]
     Dates: start: 20070701
  5. TEGRETOL [Concomitant]
  6. DEPAKENE [Concomitant]

REACTIONS (4)
  - EOSINOPHILIA [None]
  - GAMMA-GLUTAMYLTRANSFERASE INCREASED [None]
  - THROMBOCYTHAEMIA [None]
  - TRANSAMINASES INCREASED [None]
